FAERS Safety Report 19628527 (Version 1)
Quarter: 2021Q3

REPORT INFORMATION
  Report Type: Spontaneous
  Country: CN (occurrence: CN)
  Receive Date: 20210728
  Receipt Date: 20210728
  Transmission Date: 20211014
  Serious: Yes (Hospitalization)
  Sender: FDA-Public Use
  Company Number: CN-PFIZER INC-2021888310

PATIENT
  Age: 65 Year
  Sex: Male

DRUGS (3)
  1. PHARMORUBICIN [Suspect]
     Active Substance: EPIRUBICIN
     Indication: HEPATIC CANCER
     Dosage: 30 MG, 1X/DAY
     Dates: start: 20210622, end: 20210622
  2. OXALIPLATIN. [Suspect]
     Active Substance: OXALIPLATIN
     Indication: HEPATIC CANCER
     Dosage: 150 MG, 1X/DAY
     Dates: start: 20210622, end: 20210622
  3. TEGAFUR [Suspect]
     Active Substance: TEGAFUR
     Indication: HEPATIC CANCER
     Dosage: 0.6 G, 1X/DAY
     Dates: start: 20210622, end: 20210622

REACTIONS (1)
  - Hepatic function abnormal [Recovering/Resolving]

NARRATIVE: CASE EVENT DATE: 20210624
